FAERS Safety Report 9995753 (Version 1)
Quarter: 2014Q1

REPORT INFORMATION
  Report Type: Spontaneous
  Country: US (occurrence: None)
  Receive Date: 20140225
  Receipt Date: 20140225
  Transmission Date: 20141002
  Serious: Yes (Hospitalization)
  Sender: FDA-Public Use
  Company Number: 2013-US-000405

PATIENT
  Age: 52 Year
  Sex: Male

DRUGS (2)
  1. PRIALT [Suspect]
     Indication: PAIN
     Route: 037
  2. MORPHINE SULFATE [Suspect]
     Dosage: , ORAL
     Route: 048

REACTIONS (3)
  - Renal failure [None]
  - Confusional state [None]
  - Pain [None]
